FAERS Safety Report 22356366 (Version 1)
Quarter: 2023Q2

REPORT INFORMATION
  Report Type: Spontaneous
  Country: NL (occurrence: NL)
  Receive Date: 20230523
  Receipt Date: 20230523
  Transmission Date: 20230722
  Serious: Yes (Life-Threatening, Hospitalization, Disabling, Other)
  Sender: FDA-Public Use
  Company Number: None

PATIENT
  Sex: Female
  Weight: 79 kg

DRUGS (54)
  1. ACYCLOVIR [Suspect]
     Active Substance: ACYCLOVIR
     Dosage: UPTO 3 PER DAY 10MG/KG (1 DOSAGE FORM), POWDER FOR INFUSION
     Route: 065
     Dates: start: 20221121, end: 20221123
  2. ACETAMINOPHEN [Suspect]
     Active Substance: ACETAMINOPHEN
     Indication: Pain
     Dosage: UNK, (BRAND NAME NOT SPECIFIED)
     Route: 065
     Dates: start: 20221115, end: 20221129
  3. METRONIDAZOLE [Suspect]
     Active Substance: METRONIDAZOLE
     Indication: Product used for unknown indication
     Dosage: UNKNOWN; THE START AND STOP DATE IS ALSO UNKNOWN, (BRAND NAME NOT SPECIFIED)
     Route: 065
  4. CIPROFLOXACIN [Suspect]
     Active Substance: CIPROFLOXACIN
     Indication: Infection
     Dosage: UPTO 3 PER DAY 600 MILLIGRAMS (MG) I.V.
     Route: 065
     Dates: start: 20221115, end: 20221116
  5. CEFOTAXIME [Suspect]
     Active Substance: CEFOTAXIME SODIUM
     Indication: Infection
     Dosage: UPTO 6000 MG PER DAY CONTINUOUS IV
     Dates: start: 20221115, end: 20221122
  6. AMPHOTERICIN B [Suspect]
     Active Substance: AMPHOTERICIN B
     Indication: Infection
     Dosage: 2X PER WEEK 25MG (EVERY 36 HOURS), (LIPOSOMAL) / AMBISOME POWDER FOR INFUSION VIAL
     Route: 065
     Dates: start: 20221207, end: 20221213
  7. CEFTRIAXONE [Suspect]
     Active Substance: CEFTRIAXONE
     Indication: Infection
     Dosage: UNKNOWN
     Route: 065
  8. METAMIZOLE SODIUM [Suspect]
     Active Substance: METAMIZOLE SODIUM
     Indication: Pain
     Dosage: UNKNOWN (BRAND NAME NOT SPECIFIED)
     Route: 065
  9. CEFUROXIME [Suspect]
     Active Substance: CEFUROXIME
     Indication: Product used for unknown indication
     Dosage: UNKNOWN, (BRAND NAME NOT SPECIFIED)
     Route: 065
  10. AZITHROMYCIN ANHYDROUS [Suspect]
     Active Substance: AZITHROMYCIN ANHYDROUS
     Indication: Infection
     Dosage: 1 (DOSAGE FORM) {DF}, QD (1 TABLET 1 X PER DAY)
     Route: 065
     Dates: start: 20221210, end: 20221212
  11. MOXIFLOXACIN [Suspect]
     Active Substance: MOXIFLOXACIN
     Indication: Infection
     Dosage: 400 MG PER DAY IV
     Route: 042
     Dates: start: 20221116, end: 20221118
  12. PIPERACILLIN SODIUM\TAZOBACTAM SODIUM [Suspect]
     Active Substance: PIPERACILLIN SODIUM\TAZOBACTAM SODIUM
     Indication: Infection
     Dosage: 1 {DF}, QD (1 X PER DAY, IN VARYING DOSES), (BRAND NAME NOT SPECIFIED)
     Route: 065
     Dates: start: 20221122, end: 20221213
  13. PANTOPRAZOLE [Suspect]
     Active Substance: PANTOPRAZOLE
     Indication: Product used for unknown indication
     Dosage: 1 PER DAY 40 MILLIGRAMS (MG) I.V
     Route: 042
     Dates: start: 20221117, end: 20221212
  14. VANCOMYCIN [Suspect]
     Active Substance: VANCOMYCIN
     Indication: Infection
     Dosage: UP TO 1,700 MG PER DAY SINGLE IV (1 DOSAGE FORM)
     Route: 065
     Dates: start: 20221204, end: 20221204
  15. VANCOMYCIN [Suspect]
     Active Substance: VANCOMYCIN
     Dosage: UP TO 1,700 MG PER DAY SINGLE IV (1 DOSAGE FORM, QD)
     Route: 042
     Dates: start: 20221121, end: 20221122
  16. CLINDAMYCIN [Suspect]
     Active Substance: CLINDAMYCIN
     Indication: Product used for unknown indication
     Dosage: UNK
     Route: 065
  17. MORPHINE HYDROCHLORIDE [Concomitant]
     Active Substance: MORPHINE HYDROCHLORIDE
     Dosage: UNKNOWN
     Route: 065
  18. CARBAMAZEPINE [Concomitant]
     Active Substance: CARBAMAZEPINE
     Dosage: UNKNOWN, (BRAND NAME NOT SPECIFIED)
     Route: 065
  19. CALCIUM CHLORIDE\MAGNESIUM CHLORIDE\POTASSIUM CHLORIDE\SODIUM BICARBON [Concomitant]
     Active Substance: CALCIUM CHLORIDE\MAGNESIUM CHLORIDE\POTASSIUM CHLORIDE\SODIUM BICARBONATE\SODIUM CHLORIDE\SODIUM PHO
     Dosage: DOSAGE TEXT: UNKNOWN, (1.2 MMOL/L PHOSPHATE HEMOFILTRATION/DIALYSIS SOLUTION)
     Route: 065
  20. PREDNISONE [Concomitant]
     Active Substance: PREDNISONE
     Dosage: UNKNOWN, (BRAND NAME NOT SPECIFIED)
     Route: 065
  21. MILRINONE [Concomitant]
     Active Substance: MILRINONE
     Dosage: UNKNOWN
     Route: 065
  22. TEMAZEPAM [Concomitant]
     Active Substance: TEMAZEPAM
     Dosage: UNKNOWN, (BRAND NAME NOT SPECIFIED)
     Route: 065
  23. ENOXIMONE [Concomitant]
     Active Substance: ENOXIMONE
     Dosage: UNKNOWN
     Route: 065
  24. IOMEPROL [Concomitant]
     Active Substance: IOMEPROL
     Dosage: UNKNOWN
     Route: 065
  25. POTASSIUM CHLORIDE [Concomitant]
     Active Substance: POTASSIUM CHLORIDE
     Dosage: UNKNOWN, (BRAND NAME NOT SPECIFIED)
     Route: 065
  26. DEXMEDETOMIDINE [Concomitant]
     Active Substance: DEXMEDETOMIDINE
     Dosage: UNKOWN
     Route: 065
  27. EPINEPHRINE [Concomitant]
     Active Substance: EPINEPHRINE
     Dosage: UNKNOWN (BRAND NAME NOT SPECIFIED)
     Route: 065
  28. ATROPINE SULFATE [Concomitant]
     Active Substance: ATROPINE SULFATE
     Dosage: UNKNOWN, BRAND NAME NOT SPECIFIED
     Route: 065
  29. TRANEXAMIC ACID [Concomitant]
     Active Substance: TRANEXAMIC ACID
     Dosage: UNKNOWN, (BRAND NAME NOT SPECIFIED)
     Route: 065
  30. PIRITRAMIDE [Concomitant]
     Active Substance: PIRITRAMIDE
     Dosage: UNKNOWN, (BRAND NAME NOT SPECIFIED)
     Route: 065
  31. ARGIPRESSINE [Concomitant]
     Dosage: UNKNOWN (CONC 20 IU/ML)
     Route: 065
  32. OXAZEPAM [Concomitant]
     Active Substance: OXAZEPAM
     Dosage: UNKNOWN, BRAND NAME NOT SPECIFIED
     Route: 065
  33. DALTEPARIN [Concomitant]
     Active Substance: DALTEPARIN
     Dosage: UNKNOWN
     Route: 065
  34. POLYETHYLENE GLYCOLS [Concomitant]
     Active Substance: POLYETHYLENE GLYCOLS
     Dosage: UNKNOWN (ELECTROLYTE ORAL SOLUTION), (BRAND NAME NOT SPECIFIED)
     Route: 065
  35. METHYLNALTREXONE [Concomitant]
     Active Substance: METHYLNALTREXONE
     Dosage: UNKNOWN
     Route: 065
  36. MAGNESIUM SULFATE HEPTAHYDRATE [Concomitant]
     Active Substance: MAGNESIUM SULFATE HEPTAHYDRATE
     Dosage: UNKNOWN
     Route: 065
  37. LORAZEPAM [Concomitant]
     Active Substance: LORAZEPAM
     Dosage: UNKNOWN, (BRAND NAME NOT SPECIFIED)
     Route: 065
  38. HYDROCORTISONE [Concomitant]
     Active Substance: HYDROCORTISONE
     Dosage: UNKNOWN, (BRAND NAME NOT SPECIFIED)
     Route: 065
  39. ALBUMIN HUMAN [Concomitant]
     Active Substance: ALBUMIN HUMAN
     Dosage: UNKNOWN ((BRAND NAME NOT SPECIFIED))
     Route: 065
  40. FUROSEMIDE [Concomitant]
     Active Substance: FUROSEMIDE
     Dosage: UNKNOWN, (BRAND NAME NOT SPECIFIED)
     Route: 065
  41. MIDAZOLAM HYDROCHLORIDE [Concomitant]
     Active Substance: MIDAZOLAM HYDROCHLORIDE
     Dosage: UNKNOWN, (BRAND NAME NOT SPECIFIED)
     Route: 065
  42. ALBUTEROL\IPRATROPIUM [Concomitant]
     Active Substance: ALBUTEROL\IPRATROPIUM
     Dosage: NEBULIZER FLUID 1/0, 1MG/ML, (BRAND NAME NOT SPECIFIED)
     Route: 065
  43. REGIOCIT [Concomitant]
     Active Substance: SODIUM CHLORIDE\SODIUM CITRATE
     Dosage: UNKNOWN, NACL/SODIUM CITRATE HEMOFILTRATION SOLUTION 5.03/5.29 MG/ML / REGIOCIT HEMOFILTRATION/DIALY
     Route: 065
  44. SUFENTANIL CITRATE [Concomitant]
     Active Substance: SUFENTANIL CITRATE
     Dosage: UNKNOWN, (BRAND NAME NOT SPECIFIED)
     Route: 065
  45. PROPOFOL [Concomitant]
     Active Substance: PROPOFOL
     Dosage: UNKNOWN, (BRAND NAME NOT SPECIFIED)
     Route: 065
  46. ROCURONIUM [Concomitant]
     Active Substance: ROCURONIUM BROMIDE
     Dosage: UNKNOWN, (BRAND NAME NOT SPECIFIED)
     Route: 065
  47. HEPARIN [Concomitant]
     Active Substance: HEPARIN SODIUM
     Dosage: 1 IU/ML IN RINGER^S LACTATE, UNKNOWN
     Route: 065
  48. NOREPINEPHRINE [Concomitant]
     Active Substance: NOREPINEPHRINE
     Dosage: UNKNOWN, (BRAND NAME NOT SPECIFIED)
     Route: 065
  49. HALOPERIDOL [Concomitant]
     Active Substance: HALOPERIDOL
     Dosage: UNKNOWN, (BRAND NAME NOT SPECIFIED)
     Route: 065
  50. ALENDRONIC ACID [Concomitant]
     Active Substance: ALENDRONIC ACID
     Dosage: UNKNOWN
     Route: 065
  51. MAGNESIUM CHLORIDE\POTASSIUM CHLORIDE\SODIUM BICARBONATE\SODIUM CHLORI [Concomitant]
     Active Substance: MAGNESIUM CHLORIDE\POTASSIUM CHLORIDE\SODIUM BICARBONATE\SODIUM CHLORIDE\SODIUM PHOSPHATE, DIBASIC
     Dosage: UNKNOWN, HEMOFILTRATION/DIALYSIS SOLUTION
     Route: 065
  52. QUETIAPINE FUMARATE [Concomitant]
     Active Substance: QUETIAPINE FUMARATE
     Dosage: UNKNOWN, (BRAND NAME NOT SPECIFIED)
     Route: 065
  53. FENTANYL [Concomitant]
     Active Substance: FENTANYL
     Dosage: UNKNOWN, (BRAND NAME NOT SPECIFIED)
     Route: 065
  54. DOBUTAMINE [Concomitant]
     Active Substance: DOBUTAMINE HYDROCHLORIDE
     Dosage: UNKNOWN, (BRAND NAME NOT SPECIFIED)
     Route: 065

REACTIONS (1)
  - Toxic epidermal necrolysis [Recovering/Resolving]
